FAERS Safety Report 5500320-3 (Version None)
Quarter: 2007Q4

REPORT INFORMATION
  Report Type: 
  Country: None (occurrence: None)
  Receive Date: 20071025
  Receipt Date: 20071011
  Transmission Date: 20080405
  Serious: Yes (Hospitalization)
  Sender: FDA-Public Use
  Company Number: ENT 2007-0154

PATIENT
  Age: 65 Year
  Sex: Male

DRUGS (8)
  1. COMTAN [Suspect]
     Indication: PARKINSON'S DISEASE
     Dosage: 400 MG (200 MG, 2 IN 1 D) ORAL
     Route: 048
     Dates: start: 20070806, end: 20070808
  2. SYMMETREL [Concomitant]
  3. MADOPAR [Concomitant]
  4. ASPIRIN [Concomitant]
  5. RADEN [Concomitant]
  6. THEO SLOW [Concomitant]
  7. FP [Concomitant]
  8. BIOFERMIN [Concomitant]

REACTIONS (7)
  - ABASIA [None]
  - ANXIETY [None]
  - DEHYDRATION [None]
  - DYSKINESIA [None]
  - HEAT STROKE [None]
  - MUSCULAR WEAKNESS [None]
  - RHABDOMYOLYSIS [None]
